FAERS Safety Report 23536323 (Version 1)
Quarter: 2024Q1

REPORT INFORMATION
  Report Type: Spontaneous
  Country: IT (occurrence: IT)
  Receive Date: 20240219
  Receipt Date: 20240219
  Transmission Date: 20240410
  Serious: Yes (Death)
  Sender: FDA-Public Use
  Company Number: IT-JNJFOC-20231184927

PATIENT
  Age: 77 Year
  Sex: Male

DRUGS (3)
  1. CYCLOPHOSPHAMIDE [Suspect]
     Active Substance: CYCLOPHOSPHAMIDE
     Indication: Hypergammaglobulinaemia benign monoclonal
     Dosage: CHEMOTHERAPY COURSE: 1
     Route: 065
  2. DEXAMETHASONE [Suspect]
     Active Substance: DEXAMETHASONE
     Indication: Hypergammaglobulinaemia benign monoclonal
     Dosage: CHEMOTHERAPY COURSE: 1
     Route: 065
  3. VELCADE [Suspect]
     Active Substance: BORTEZOMIB
     Indication: Hypergammaglobulinaemia benign monoclonal
     Dosage: CHEMOTHERAPY COURSE: 1
     Route: 065

REACTIONS (2)
  - Sudden cardiac death [Fatal]
  - Off label use [Unknown]
